FAERS Safety Report 17929098 (Version 3)
Quarter: 2020Q3

REPORT INFORMATION
  Report Type: Spontaneous
  Country: HR (occurrence: HR)
  Receive Date: 20200623
  Receipt Date: 20200829
  Transmission Date: 20201103
  Serious: Yes (Death, Life-Threatening, Hospitalization, Other)
  Sender: FDA-Public Use
  Company Number: HR-ELI_LILLY_AND_COMPANY-HR202006008924

PATIENT
  Age: 78 Year
  Sex: Male
  Weight: 68 kg

DRUGS (2)
  1. PACLITAXEL PLIVA [Concomitant]
     Active Substance: PACLITAXEL
     Indication: GASTRIC CANCER
     Dosage: 80 MG/KG ON DAY 1, DAY 8, AND DAY 15
     Route: 042
     Dates: start: 20180920, end: 20181004
  2. CYRAMZA [Suspect]
     Active Substance: RAMUCIRUMAB
     Indication: GASTRIC CANCER
     Dosage: 8 MG/KG ON DAY 1 AND DAY 15 EVERY 4 WEEKS
     Route: 042
     Dates: start: 201809, end: 20181004

REACTIONS (7)
  - Abdominal pain upper [Unknown]
  - Death [Fatal]
  - Post procedural haemorrhage [Unknown]
  - Fatigue [Unknown]
  - Suprapubic pain [Unknown]
  - Generalised oedema [Unknown]
  - Fournier^s gangrene [Unknown]
